FAERS Safety Report 22350287 (Version 1)
Quarter: 2023Q2

REPORT INFORMATION
  Report Type: Spontaneous
  Country: US (occurrence: US)
  Receive Date: 20230522
  Receipt Date: 20230522
  Transmission Date: 20230721
  Serious: No
  Sender: FDA-Public Use
  Company Number: US-PFIZER INC-202300176433

PATIENT
  Age: 20 Year
  Sex: Male
  Weight: 68.04 kg

DRUGS (1)
  1. NURTEC ODT [Suspect]
     Active Substance: RIMEGEPANT SULFATE
     Indication: Headache
     Dosage: 75 MG, ALTERNATE DAY (ONE TABLET EVERY OTHER DAY BY MOUTH)
     Route: 048
     Dates: start: 202303

REACTIONS (5)
  - Dizziness [Unknown]
  - Dyspepsia [Unknown]
  - Dyspepsia [Unknown]
  - Off label use [Unknown]
  - Inappropriate schedule of product administration [Unknown]

NARRATIVE: CASE EVENT DATE: 20230301
